FAERS Safety Report 18634940 (Version 1)
Quarter: 2020Q4

REPORT INFORMATION
  Report Type: Spontaneous
  Country: US (occurrence: US)
  Receive Date: 20201218
  Receipt Date: 20201218
  Transmission Date: 20210114
  Serious: No
  Sender: FDA-Public Use
  Company Number: None

PATIENT
  Age: 60 Year
  Sex: Male
  Weight: 93 kg

DRUGS (2)
  1. SULFASALAZINE (SULFASALAZINE 500MG TAB) [Suspect]
     Active Substance: SULFASALAZINE
     Indication: SJOGREN^S SYNDROME
     Route: 048
     Dates: start: 20200610, end: 20200713
  2. SULFASALAZINE (SULFASALAZINE 500MG TAB) [Suspect]
     Active Substance: SULFASALAZINE
     Indication: ARTHRITIS
     Route: 048
     Dates: start: 20200610, end: 20200713

REACTIONS (5)
  - Thrombocytopenia [None]
  - Rash [None]
  - Anaemia [None]
  - Pancytopenia [None]
  - Leukopenia [None]

NARRATIVE: CASE EVENT DATE: 20200730
